FAERS Safety Report 6083909-5 (Version None)
Quarter: 2009Q1

REPORT INFORMATION
  Report Type: 
  Country: None (occurrence: None)
  Receive Date: 20090217
  Receipt Date: 20090206
  Transmission Date: 20090719
  Serious: Yes (Other)
  Sender: FDA-Public Use
  Company Number: 2009US000324

PATIENT
  Age: 16 Year

DRUGS (3)
  1. PROGRAF [Suspect]
     Indication: INTESTINAL TRANSPLANT
  2. ANTI-THYMOCYTE GLOBULIN RABBIT NOS [Concomitant]
  3. PREDNISONE TAB [Concomitant]

REACTIONS (2)
  - PERITONITIS SCLEROSING [None]
  - TRANSPLANT REJECTION [None]
